FAERS Safety Report 9369610 (Version 1)
Quarter: 2013Q2

REPORT INFORMATION
  Report Type: Spontaneous
  Country: US (occurrence: US)
  Receive Date: 20130626
  Receipt Date: 20130626
  Transmission Date: 20140414
  Serious: No
  Sender: FDA-Public Use
  Company Number: US-MYLANLABS-2013S1004947

PATIENT
  Sex: Female

DRUGS (7)
  1. PERFOROMIST (FORMOTEROL FUMARATE) INHALATION SOLUTION [Suspect]
     Indication: CHRONIC OBSTRUCTIVE PULMONARY DISEASE
     Route: 055
  2. PERFOROMIST (FORMOTEROL FUMARATE) INHALATION SOLUTION [Suspect]
     Indication: EMPHYSEMA
     Route: 055
  3. XOPENEX [Concomitant]
  4. PREDNISONE [Concomitant]
  5. XANAX [Concomitant]
  6. NORCO [Concomitant]
  7. AZELASTINE [Concomitant]
     Route: 045

REACTIONS (9)
  - Diarrhoea [Not Recovered/Not Resolved]
  - Rhinorrhoea [Not Recovered/Not Resolved]
  - Headache [Not Recovered/Not Resolved]
  - Dysphonia [Not Recovered/Not Resolved]
  - Fatigue [Not Recovered/Not Resolved]
  - Nausea [Recovered/Resolved]
  - Blister [Not Recovered/Not Resolved]
  - Oral pain [Not Recovered/Not Resolved]
  - Sinus congestion [Not Recovered/Not Resolved]
